FAERS Safety Report 4455337-7 (Version None)
Quarter: 2004Q3

REPORT INFORMATION
  Report Type: 
  Country: None (occurrence: None)
  Receive Date: 20040825
  Receipt Date: 20040527
  Transmission Date: 20050211
  Serious: No
  Sender: FDA-Public Use
  Company Number: 206821

PATIENT
  Age: 62 Year
  Sex: Female
  Weight: 68 kg

DRUGS (12)
  1. RAPTIVA [Suspect]
     Indication: PSORIASIS
     Dosage: 70 MG,1/WEEK,SUBCUTANEOUS
     Route: 058
     Dates: start: 20040309
  2. LIPITOR [Concomitant]
  3. PLAVIX [Concomitant]
  4. POTASSIUM (POTASSIUM NOS) [Concomitant]
  5. LASIX [Concomitant]
  6. BETAPACE [Concomitant]
  7. ALBUTEROL (ALBUTEROL, ALBUTEROL SULFATE) [Concomitant]
  8. SEREVENT (SALEMTEROL XINAFOATE) [Concomitant]
  9. AZMACORT [Concomitant]
  10. CITRACAL (CALCIUM CITRATE) [Concomitant]
  11. MULIT-VITAMIN SUPPLEMENT (MULTIVITAMINS NOS) [Concomitant]
  12. ISOSORBIDE (ISOSORBIDE NOS) [Concomitant]

REACTIONS (1)
  - INJECTION SITE BURNING [None]
